FAERS Safety Report 11852665 (Version 5)
Quarter: 2016Q3

REPORT INFORMATION
  Report Type: Report from Study
  Country: BR (occurrence: BR)
  Receive Date: 20151218
  Receipt Date: 20160706
  Transmission Date: 20161109
  Serious: Yes (Other)
  Sender: FDA-Public Use
  Company Number: BR-ABBVIE-15K-020-1518627-00

PATIENT
  Age: 54 Year
  Sex: Female
  Weight: 66 kg

DRUGS (12)
  1. DORIL [Concomitant]
     Indication: HEADACHE
     Route: 048
     Dates: start: 2014, end: 20151209
  2. RIVOTRIL [Concomitant]
     Active Substance: CLONAZEPAM
     Indication: INSOMNIA
     Route: 048
     Dates: start: 2014
  3. HUMIRA [Suspect]
     Active Substance: ADALIMUMAB
     Indication: PSORIATIC ARTHROPATHY
     Route: 058
     Dates: start: 20151001
  4. NEOPRAZOL [Concomitant]
     Active Substance: OMEPRAZOLE
     Indication: GASTRITIS
     Route: 048
  5. DORALGINA [Concomitant]
     Indication: PAIN
  6. LACRIFILM [Suspect]
     Active Substance: CARBOXYMETHYLCELLULOSE SODIUM
     Indication: DRY EYE
  7. RIVOTRIL [Concomitant]
     Active Substance: CLONAZEPAM
     Indication: ANXIETY
  8. LACRIFILM [Suspect]
     Active Substance: CARBOXYMETHYLCELLULOSE SODIUM
     Indication: EYE IRRITATION
     Route: 047
  9. DORALGINA [Concomitant]
     Indication: MIGRAINE
     Route: 048
  10. DORIL [Concomitant]
     Indication: SPINAL PAIN
  11. DIPYRONE [Concomitant]
     Active Substance: DIPYRONE
     Indication: HEADACHE
     Route: 048
     Dates: end: 20151209
  12. DIAZEPAM. [Concomitant]
     Active Substance: DIAZEPAM
     Indication: PRODUCT USED FOR UNKNOWN INDICATION

REACTIONS (62)
  - Hallucination [Unknown]
  - Sluggishness [Not Recovered/Not Resolved]
  - Injection site haematoma [Recovered/Resolved]
  - Injection site pruritus [Recovered/Resolved]
  - Injection site pain [Recovered/Resolved]
  - Injection site warmth [Recovered/Resolved]
  - Tongue spasm [Recovered/Resolved]
  - Wrong technique in product usage process [Unknown]
  - Injection site warmth [Recovering/Resolving]
  - Migraine [Recovered/Resolved]
  - Restlessness [Recovering/Resolving]
  - Pallor [Recovered/Resolved]
  - Abdominal pain upper [Unknown]
  - Injection site pain [Recovered/Resolved]
  - Injection site haematoma [Recovered/Resolved]
  - Incorrect dose administered [Unknown]
  - Anxiety [Unknown]
  - Insomnia [Not Recovered/Not Resolved]
  - Hypoaesthesia [Recovered/Resolved]
  - Feeling hot [Not Recovered/Not Resolved]
  - Nausea [Not Recovered/Not Resolved]
  - Heart rate increased [Unknown]
  - Stress [Not Recovered/Not Resolved]
  - Feeling hot [Recovered/Resolved]
  - Injection site mass [Recovering/Resolving]
  - Swelling [Recovering/Resolving]
  - Pruritus generalised [Unknown]
  - Injection site erythema [Recovered/Resolved]
  - Skin irritation [Not Recovered/Not Resolved]
  - Dyspnoea [Unknown]
  - Hypoaesthesia [Recovered/Resolved]
  - Dyspnoea [Recovered/Resolved]
  - Injection site erythema [Recovered/Resolved]
  - Malaise [Recovered/Resolved]
  - Pallor [Recovered/Resolved]
  - Blood pressure decreased [Recovered/Resolved]
  - Somnolence [Recovered/Resolved]
  - Dry eye [Recovering/Resolving]
  - Eye swelling [Recovering/Resolving]
  - Peripheral swelling [Recovered/Resolved]
  - Pain in extremity [Recovered/Resolved]
  - Hypoaesthesia [Unknown]
  - Injection site pain [Not Recovered/Not Resolved]
  - Inappropriate schedule of drug administration [Unknown]
  - Feeling cold [Recovered/Resolved]
  - Pollakiuria [Not Recovered/Not Resolved]
  - Swelling face [Recovering/Resolving]
  - Injection site abscess [Recovered/Resolved]
  - Pruritus [Recovered/Resolved]
  - Pruritus [Recovered/Resolved]
  - Dizziness [Recovering/Resolving]
  - Incorrect dose administered [Recovered/Resolved]
  - Skin irritation [Recovered/Resolved]
  - Nervousness [Not Recovered/Not Resolved]
  - Malaise [Recovered/Resolved]
  - Abdominal pain upper [Recovered/Resolved]
  - Blood triglycerides increased [Not Recovered/Not Resolved]
  - Hypoaesthesia [Recovered/Resolved]
  - Pallor [Unknown]
  - Malaise [Unknown]
  - Dyspnoea [Recovered/Resolved]
  - Injection site pruritus [Recovered/Resolved]

NARRATIVE: CASE EVENT DATE: 2015
